FAERS Safety Report 15188187 (Version 1)
Quarter: 2018Q3

REPORT INFORMATION
  Report Type: Spontaneous
  Country: US (occurrence: US)
  Receive Date: 20180724
  Receipt Date: 20180724
  Transmission Date: 20181010
  Serious: No
  Sender: FDA-Public Use
  Company Number: US-ASTRAZENECA-2018SE88192

PATIENT
  Age: 48 Year

DRUGS (1)
  1. IMFINZI [Suspect]
     Active Substance: DURVALUMAB
     Indication: OVARIAN CANCER STAGE III
     Route: 042

REACTIONS (1)
  - Carbohydrate antigen 125 [Unknown]
